FAERS Safety Report 26055824 (Version 2)
Quarter: 2025Q4

REPORT INFORMATION
  Report Type: Report from Study
  Country: US (occurrence: US)
  Receive Date: 20251118
  Receipt Date: 20251124
  Transmission Date: 20260117
  Serious: No
  Sender: ABBVIE
  Company Number: US-ABBVIE-6548511

PATIENT
  Age: 73 Year
  Sex: Male
  Weight: 74 kg

DRUGS (3)
  1. HUMIRA [Suspect]
     Active Substance: ADALIMUMAB
     Indication: Psoriasis
     Dosage: STARTED AROUND 2019 OR 2020?FORM STRENGTH: 40 MILLIGRAM
     Route: 058
     Dates: end: 202412
  2. TAMSULOSIN [Concomitant]
     Active Substance: TAMSULOSIN
     Indication: Benign prostatic hyperplasia
  3. IBUPROFEN [Concomitant]
     Active Substance: IBUPROFEN
     Indication: Musculoskeletal stiffness

REACTIONS (1)
  - Psoriasis [Not Recovered/Not Resolved]

NARRATIVE: CASE EVENT DATE: 20230101
